FAERS Safety Report 20954703 (Version 9)
Quarter: 2022Q4

REPORT INFORMATION
  Report Type: Report from Study
  Country: US (occurrence: US)
  Receive Date: 20220614
  Receipt Date: 20221202
  Transmission Date: 20230113
  Serious: Yes (Hospitalization)
  Sender: FDA-Public Use
  Company Number: US-BoehringerIngelheim-2021-BI-144830

PATIENT
  Age: 78 Year
  Sex: Male

DRUGS (7)
  1. OFEV [Suspect]
     Active Substance: NINTEDANIB
     Indication: Idiopathic pulmonary fibrosis
     Route: 048
     Dates: start: 202111, end: 20211221
  2. OFEV [Suspect]
     Active Substance: NINTEDANIB
     Route: 048
     Dates: start: 20211223
  3. OFEV [Suspect]
     Active Substance: NINTEDANIB
     Route: 048
     Dates: start: 20211213
  4. OFEV [Suspect]
     Active Substance: NINTEDANIB
     Route: 048
  5. OFEV [Suspect]
     Active Substance: NINTEDANIB
     Dosage: 3 TIMES PER WEEK
  6. OFEV [Suspect]
     Active Substance: NINTEDANIB
     Dosage: 4 PILLS PER WEEK
     Route: 048
  7. PREDNISONE [Suspect]
     Active Substance: PREDNISONE
     Indication: Product used for unknown indication

REACTIONS (30)
  - Diarrhoea [Recovered/Resolved]
  - Dehydration [Unknown]
  - Diarrhoea [Unknown]
  - Loss of consciousness [Recovered/Resolved]
  - Electrolyte imbalance [Recovered/Resolved]
  - Balance disorder [Recovered/Resolved]
  - Diarrhoea [Unknown]
  - Dehydration [Unknown]
  - Rhinorrhoea [Unknown]
  - Decreased appetite [Recovering/Resolving]
  - Nausea [Not Recovered/Not Resolved]
  - Ageusia [Recovering/Resolving]
  - Hypertension [Recovered/Resolved]
  - Parosmia [Recovering/Resolving]
  - Glucose tolerance impaired [Recovered/Resolved]
  - Blood glucose abnormal [Recovering/Resolving]
  - Glycosylated haemoglobin increased [Unknown]
  - Taste disorder [Not Recovered/Not Resolved]
  - Abdominal distension [Not Recovered/Not Resolved]
  - Weight decreased [Not Recovered/Not Resolved]
  - Blood glucose decreased [Not Recovered/Not Resolved]
  - Cough [Unknown]
  - Upper-airway cough syndrome [Unknown]
  - Ocular discomfort [Unknown]
  - Malaise [Unknown]
  - Abdominal pain [Not Recovered/Not Resolved]
  - Glucose tolerance impaired [Recovered/Resolved]
  - Dyspnoea [Not Recovered/Not Resolved]
  - Weight increased [Recovered/Resolved]
  - Fluid retention [Recovered/Resolved]

NARRATIVE: CASE EVENT DATE: 20211101
